FAERS Safety Report 18774611 (Version 1)
Quarter: 2021Q1

REPORT INFORMATION
  Report Type: Spontaneous
  Country: US (occurrence: US)
  Receive Date: 20210122
  Receipt Date: 20210122
  Transmission Date: 20210419
  Serious: No
  Sender: FDA-Public Use
  Company Number: US-ACCORD-196765

PATIENT
  Sex: Male
  Weight: 102.5 kg

DRUGS (3)
  1. CLOZAPINE ACCORD [Suspect]
     Active Substance: CLOZAPINE
     Indication: SCHIZOPHRENIA
     Route: 048
     Dates: start: 20200804
  2. FLUOXETINE [Concomitant]
     Active Substance: FLUOXETINE HYDROCHLORIDE
     Indication: DEPRESSION
     Dates: start: 20200817, end: 20200822
  3. FLUPHENAZINE [Concomitant]
     Active Substance: FLUPHENAZINE
     Indication: SCHIZOPHRENIA
     Route: 048
     Dates: start: 20200804, end: 20200822

REACTIONS (1)
  - Imprisonment [Unknown]
